FAERS Safety Report 20371938 (Version 1)
Quarter: 2022Q1

REPORT INFORMATION
  Report Type: Spontaneous
  Country: US (occurrence: US)
  Receive Date: 20220124
  Receipt Date: 20220124
  Transmission Date: 20220423
  Serious: No
  Sender: FDA-Public Use
  Company Number: US-ANIPHARMA-2021-US-017362

PATIENT
  Age: 68 Year
  Sex: Female

DRUGS (2)
  1. REGLAN [Suspect]
     Active Substance: METOCLOPRAMIDE HYDROCHLORIDE
     Indication: Product used for unknown indication
     Route: 065
  2. XOLAIR [Concomitant]
     Active Substance: OMALIZUMAB
     Route: 065

REACTIONS (1)
  - Hypersensitivity [Unknown]
